FAERS Safety Report 21284384 (Version 1)
Quarter: 2022Q3

REPORT INFORMATION
  Report Type: Spontaneous
  Country: US (occurrence: US)
  Receive Date: 20220902
  Receipt Date: 20220902
  Transmission Date: 20221026
  Serious: No
  Sender: FDA-Public Use
  Company Number: US-BRISTOL-MYERS SQUIBB COMPANY-2022-098545

PATIENT
  Age: 67 Year
  Sex: Female

DRUGS (2)
  1. ORENCIA [Suspect]
     Active Substance: ABATACEPT
     Indication: Product used for unknown indication
     Dosage: DOSE : UNAVAILABLE;     FREQ : ONE SYRINGE ONCE A WEEK
     Route: 058
  2. ORENCIA [Suspect]
     Active Substance: ABATACEPT

REACTIONS (4)
  - Fatigue [Unknown]
  - Anaemia [Unknown]
  - Blood iron abnormal [Unknown]
  - Sleep disorder [Unknown]

NARRATIVE: CASE EVENT DATE: 20220828
